FAERS Safety Report 4874609-5 (Version None)
Quarter: 2006Q1

REPORT INFORMATION
  Report Type: 
  Country: None (occurrence: None)
  Receive Date: 20060106
  Receipt Date: 20050112
  Transmission Date: 20060701
  Serious: Yes (Hospitalization)
  Sender: FDA-Public Use
  Company Number: US-MERCK-0501USA01856

PATIENT
  Age: 60 Year
  Sex: Male
  Weight: 107 kg

DRUGS (1)
  1. VIOXX [Suspect]
     Indication: ARTHRALGIA
     Route: 048
     Dates: start: 20020606, end: 20040901

REACTIONS (2)
  - ARTERIAL OCCLUSIVE DISEASE [None]
  - CHEST PAIN [None]
